FAERS Safety Report 9087890 (Version 1)
Quarter: 2013Q1

REPORT INFORMATION
  Report Type: Spontaneous
  Country: US (occurrence: US)
  Receive Date: 20130201
  Receipt Date: 20130201
  Transmission Date: 20140127
  Serious: Yes (Other)
  Sender: FDA-Public Use
  Company Number: US-BAYER-2013-009442

PATIENT
  Age: 27 Year
  Sex: Female

DRUGS (2)
  1. MIRENA [Suspect]
     Indication: ENDOMETRIOSIS
     Dosage: 20 MCG/24HR, CONT
     Route: 015
     Dates: start: 20120531, end: 20121121
  2. MIRENA [Suspect]
     Indication: MENORRHAGIA

REACTIONS (3)
  - Genital haemorrhage [Recovered/Resolved]
  - Device expulsion [None]
  - Pain [Recovered/Resolved]
